FAERS Safety Report 7795917-4 (Version None)
Quarter: 2011Q4

REPORT INFORMATION
  Report Type: 
  Country: None (occurrence: None)
  Receive Date: 20111004
  Receipt Date: 20110922
  Transmission Date: 20120403
  Serious: Yes (Hospitalization, Other)
  Sender: FDA-Public Use
  Company Number: US-ELI_LILLY_AND_COMPANY-US201108003889

PATIENT
  Sex: Male

DRUGS (7)
  1. TESTOSTERONE [Concomitant]
  2. CALCIUM CARBONATE [Concomitant]
  3. IMURAN [Concomitant]
  4. FORTEO [Suspect]
     Indication: OSTEOPOROSIS
     Dosage: 20 UG, QD
     Route: 065
     Dates: start: 20110101
  5. FORTEO [Suspect]
     Dosage: 20 UG, QD
     Route: 065
  6. PREDNISONE [Concomitant]
  7. VITAMIN TAB [Concomitant]

REACTIONS (7)
  - PLASMAPHERESIS [None]
  - NAUSEA [None]
  - SINUS DISORDER [None]
  - DIARRHOEA [None]
  - PULMONARY THROMBOSIS [None]
  - INJECTION SITE HAEMATOMA [None]
  - RETCHING [None]
